FAERS Safety Report 10265854 (Version 2)
Quarter: 2014Q2

REPORT INFORMATION
  Report Type: Spontaneous
  Country: DE (occurrence: DE)
  Receive Date: 20140627
  Receipt Date: 20140627
  Transmission Date: 20141212
  Serious: Yes (Hospitalization, Other)
  Sender: FDA-Public Use
  Company Number: DE-TEVA-475509GER

PATIENT
  Age: 32 Year
  Sex: Female
  Weight: 92 kg

DRUGS (2)
  1. DIAZEPAM 5 MG TABLETTEN [Suspect]
     Dates: start: 20090110
  2. FOLIC ACID/IODINE [Concomitant]
     Dosage: FOLIC ACID AND IODINE

REACTIONS (6)
  - Disseminated intravascular coagulation [Unknown]
  - Hysterectomy [Unknown]
  - Fall [Unknown]
  - Exposure during pregnancy [None]
  - Ovarian cyst [None]
  - Failed induction of labour [None]
